FAERS Safety Report 7125217-7 (Version None)
Quarter: 2010Q4

REPORT INFORMATION
  Report Type: 
  Country: None (occurrence: None)
  Receive Date: 20101129
  Receipt Date: 20101118
  Transmission Date: 20110411
  Serious: Yes (Hospitalization)
  Sender: FDA-Public Use
  Company Number: PHHY2010AU59789

PATIENT
  Sex: Male

DRUGS (4)
  1. TEGRETOL-XR [Suspect]
     Indication: EPILEPSY
     Dosage: 1.5 DF, BID (MORNING AND NIGHT)
     Route: 048
  2. AVAPRO [Concomitant]
     Indication: HYPERTENSION
     Dosage: 300 MG, UNK
     Route: 048
  3. NOTEN [Concomitant]
     Indication: HYPERTENSION
     Dosage: 0.5 DF, QD
     Route: 048
  4. MURELAX [Concomitant]
     Indication: INSOMNIA
     Dosage: 30 MG, QHS
     Route: 048

REACTIONS (2)
  - PAIN IN EXTREMITY [None]
  - THROMBOSIS [None]
